FAERS Safety Report 15131386 (Version 3)
Quarter: 2018Q4

REPORT INFORMATION
  Report Type: Report from Study
  Country: US (occurrence: US)
  Receive Date: 20180711
  Receipt Date: 20181120
  Transmission Date: 20190204
  Serious: Yes (Hospitalization)
  Sender: FDA-Public Use
  Company Number: US-ACTELION-A-NJ2018-171197

PATIENT
  Age: 19 Year
  Sex: Female

DRUGS (5)
  1. ADCIRCA [Concomitant]
     Active Substance: TADALAFIL
     Dosage: 20 MG, QD
     Dates: start: 201604
  2. LETAIRIS [Suspect]
     Active Substance: AMBRISENTAN
     Indication: PULMONARY HYPERTENSION
     Dosage: 5 MG, QD
     Route: 048
     Dates: start: 201605
  3. UPTRAVI [Suspect]
     Active Substance: SELEXIPAG
     Indication: PULMONARY ARTERIAL HYPERTENSION
     Dosage: 200 MCG, BID
     Route: 048
     Dates: start: 20170714
  4. OXYGEN. [Concomitant]
     Active Substance: OXYGEN
  5. REMODULIN [Concomitant]
     Active Substance: TREPROSTINIL
     Route: 058

REACTIONS (11)
  - Pulmonary arterial pressure increased [Unknown]
  - Pulmonary hypertension [Not Recovered/Not Resolved]
  - Dehydration [Recovered/Resolved]
  - Spinal cord operation [Unknown]
  - Nausea [Recovered/Resolved]
  - Dyspnoea [Unknown]
  - Oxygen consumption increased [Unknown]
  - Diarrhoea [Recovered/Resolved]
  - Pyrexia [Recovered/Resolved]
  - Vomiting [Recovered/Resolved]
  - Chest pain [Unknown]

NARRATIVE: CASE EVENT DATE: 20180413
